FAERS Safety Report 24450307 (Version 3)
Quarter: 2024Q4

REPORT INFORMATION
  Report Type: Spontaneous
  Country: JP (occurrence: JP)
  Receive Date: 20241017
  Receipt Date: 20241107
  Transmission Date: 20250114
  Serious: Yes (Hospitalization, Other)
  Sender: GENMAB
  Company Number: JP-GENMAB-2024-03736

PATIENT
  Age: 88 Year
  Sex: Female

DRUGS (9)
  1. EPKINLY [Suspect]
     Active Substance: EPCORITAMAB-BYSP
     Indication: Diffuse large B-cell lymphoma
     Dosage: 0.16 MILLIGRAM, SINGLE, DAY 1
     Route: 058
     Dates: start: 20240620, end: 20240620
  2. EPKINLY [Suspect]
     Active Substance: EPCORITAMAB-BYSP
     Dosage: 0.8 MILLIGRAM, SINGLE, DAY 8
     Route: 058
     Dates: start: 20240627, end: 20240627
  3. EPKINLY [Suspect]
     Active Substance: EPCORITAMAB-BYSP
     Dosage: 48 MILLIGRAM, FROM DAY 15
     Route: 058
     Dates: start: 20240704
  4. DEXAMETHASONE [Concomitant]
     Active Substance: DEXAMETHASONE
     Indication: Premedication
     Dosage: 20 MG, FROM DAY1 TO DAY 4 OF THE FIRST, SECOND, THIRD AND FOURTH ADMINISTRATION OF EPKINLY
     Dates: start: 20240620, end: 20240725
  5. DEXAMETHASONE [Concomitant]
     Active Substance: DEXAMETHASONE
     Indication: Immune effector cell-associated neurotoxicity syndrome
     Dosage: UNK, AFTER THE THIRD ADMINISTRATION OF EPKINLY, DOSE INCREASED, DAY20?DAY23?DAY32
     Dates: start: 20240709, end: 20240721
  6. ACETAMINOPHEN [Concomitant]
     Active Substance: ACETAMINOPHEN
     Indication: Premedication
     Dosage: 900 MILLIGRAM, AT ADMINISTRATION OF EPKINLY
     Dates: start: 20240620, end: 20240704
  7. CHLORPHENIRAMINE MALEATE [Concomitant]
     Active Substance: CHLORPHENIRAMINE MALEATE
     Indication: Premedication
     Dosage: 2 MILLIGRAM, AT ADMINISTRATION OF EPKINLY
     Dates: start: 20240620, end: 20240704
  8. ENTECAVIR [ENTECAVIR MONOHYDRATE] [Concomitant]
     Dosage: UNK
     Route: 048
  9. URSODIOL [Concomitant]
     Active Substance: URSODIOL
     Dosage: UNK
     Route: 048

REACTIONS (3)
  - Herpes zoster disseminated [Recovering/Resolving]
  - Immune effector cell-associated neurotoxicity syndrome [Recovered/Resolved]
  - Cytokine release syndrome [Recovered/Resolved]

NARRATIVE: CASE EVENT DATE: 20240705
